FAERS Safety Report 6413025-1 (Version None)
Quarter: 2009Q4

REPORT INFORMATION
  Report Type: 
  Country: None (occurrence: None)
  Receive Date: 20091023
  Receipt Date: 20091023
  Transmission Date: 20100525
  Serious: No
  Sender: FDA-Public Use
  Company Number: None

PATIENT
  Age: 78 Year
  Sex: Female

DRUGS (1)
  1. CYMBALTA [Suspect]
     Dosage: 1 CAPSULE ORAL
     Route: 048
     Dates: start: 20091007

REACTIONS (6)
  - DIARRHOEA [None]
  - FEELING ABNORMAL [None]
  - MUSCLE STRAIN [None]
  - RETCHING [None]
  - SOMNOLENCE [None]
  - VOMITING [None]
